FAERS Safety Report 24701507 (Version 1)
Quarter: 2024Q4

REPORT INFORMATION
  Report Type: Spontaneous
  Country: US (occurrence: None)
  Receive Date: 20241205
  Receipt Date: 20241205
  Transmission Date: 20250114
  Serious: Yes (Life-Threatening, Disabling)
  Sender: Public
  Company Number: None

PATIENT
  Age: 65 Year
  Sex: Male
  Weight: 74.84 kg

DRUGS (6)
  1. LYUMJEV [Suspect]
     Active Substance: INSULIN LISPRO-AABC
     Indication: Type 1 diabetes mellitus
     Dosage: OTHER FREQUENCY : MEALSTIMES AND SNACK TIMES ;?
     Dates: start: 20240601
  2. DEXCOM G7 SENSOR AND MOBILE PHONE APP [Concomitant]
  3. TRESIBA LONG ACTING INSULIN - 1 INJECTION, 13 UNITS DAILY [Concomitant]
  4. LYUMJEV FAST ACTING INSULIN [Concomitant]
  5. ROSUVASTATIN [Concomitant]
     Active Substance: ROSUVASTATIN
  6. LEVOTHYROXINE [Concomitant]
     Active Substance: LEVOTHYROXINE

REACTIONS (3)
  - Therapeutic response shortened [None]
  - Drug ineffective [None]
  - Hypoglycaemia [None]

NARRATIVE: CASE EVENT DATE: 20240601
